FAERS Safety Report 8185655-0 (Version None)
Quarter: 2012Q1

REPORT INFORMATION
  Report Type: 
  Country: None (occurrence: None)
  Receive Date: 20120305
  Receipt Date: 20120216
  Transmission Date: 20120608
  Serious: Yes (Other)
  Sender: FDA-Public Use
  Company Number: CHPA2012US003246

PATIENT
  Age: 61 Year
  Sex: Female

DRUGS (1)
  1. EXCEDRIN (MIGRAINE) [Suspect]
     Indication: MIGRAINE
     Dosage: 2 DF, QD OR BID
     Route: 048
     Dates: start: 20110101

REACTIONS (5)
  - DRUG DEPENDENCE [None]
  - CONVULSION [None]
  - OVERDOSE [None]
  - BACK INJURY [None]
  - MEMORY IMPAIRMENT [None]
